FAERS Safety Report 7722646-5 (Version None)
Quarter: 2011Q3

REPORT INFORMATION
  Report Type: 
  Country: None (occurrence: None)
  Receive Date: 20110831
  Receipt Date: 20110822
  Transmission Date: 20111222
  Serious: Yes (Hospitalization, Other)
  Sender: FDA-Public Use
  Company Number: US-ASTRAZENECA-2010SE21479

PATIENT
  Age: 67 Year
  Sex: Female
  Weight: 86.2 kg

DRUGS (26)
  1. SEROQUEL [Suspect]
     Route: 048
     Dates: start: 20100601, end: 20100101
  2. SEROQUEL [Suspect]
     Route: 048
  3. CITALOPRAM [Concomitant]
     Indication: DEPRESSION
  4. ATIVAN [Concomitant]
     Route: 048
  5. SEROQUEL [Suspect]
     Route: 048
     Dates: start: 20100601, end: 20100101
  6. ATIVAN [Concomitant]
     Route: 048
  7. HYDROCODONE BITARTRATE [Concomitant]
     Indication: PAIN
  8. BLOOD PRESSURE MED [Concomitant]
     Indication: HYPERTENSION
  9. SEROQUEL [Suspect]
     Indication: ANXIETY
     Route: 048
     Dates: start: 20090101, end: 20100601
  10. SEROQUEL [Suspect]
     Route: 048
  11. NEXIUM [Suspect]
     Indication: DYSPEPSIA
     Route: 048
  12. SEROQUEL [Suspect]
     Route: 048
  13. ATIVAN [Concomitant]
     Route: 048
  14. ATIVAN [Concomitant]
     Route: 048
  15. SEROQUEL [Suspect]
     Indication: SLEEP DISORDER
     Route: 048
     Dates: start: 20090101, end: 20100601
  16. SEROQUEL [Suspect]
     Route: 048
  17. CLONAZEPAM [Concomitant]
     Indication: ANXIETY
  18. NEXIUM [Suspect]
     Indication: GASTROOESOPHAGEAL REFLUX DISEASE
     Route: 048
  19. ATIVAN [Concomitant]
     Indication: ANXIETY
     Route: 048
     Dates: start: 19970101
  20. ATIVAN [Concomitant]
     Indication: SLEEP DISORDER
     Route: 048
     Dates: start: 19970101
  21. SEROQUEL [Suspect]
     Indication: ANTIDEPRESSANT THERAPY
     Route: 048
     Dates: start: 20090101, end: 20100601
  22. SEROQUEL [Suspect]
     Route: 048
     Dates: start: 20100601, end: 20100101
  23. SEROQUEL [Suspect]
     Route: 048
  24. SEROQUEL [Suspect]
     Route: 048
  25. ROBAXIN [Concomitant]
     Indication: MUSCLE SPASMS
  26. METHOCARBAMOL [Concomitant]
     Indication: PAIN

REACTIONS (21)
  - IRREGULAR SLEEP PHASE [None]
  - DIZZINESS [None]
  - SOMNOLENCE [None]
  - DRUG INEFFECTIVE FOR UNAPPROVED INDICATION [None]
  - FEELING ABNORMAL [None]
  - DRUG DOSE OMISSION [None]
  - INSOMNIA [None]
  - FATIGUE [None]
  - FEELING JITTERY [None]
  - RENAL FAILURE ACUTE [None]
  - DYSPHONIA [None]
  - NERVOUSNESS [None]
  - OFF LABEL USE [None]
  - INCORRECT DOSE ADMINISTERED [None]
  - TREMOR [None]
  - DEPRESSION [None]
  - WRONG TECHNIQUE IN DRUG USAGE PROCESS [None]
  - CEREBRAL HAEMORRHAGE [None]
  - ABNORMAL DREAMS [None]
  - MIDDLE INSOMNIA [None]
  - POOR QUALITY SLEEP [None]
